FAERS Safety Report 16235495 (Version 2)
Quarter: 2020Q2

REPORT INFORMATION
  Report Type: Report from Study
  Country: US (occurrence: US)
  Receive Date: 20190424
  Receipt Date: 20200521
  Transmission Date: 20200713
  Serious: No
  Sender: FDA-Public Use
  Company Number: PHHY2015US070990

PATIENT
  Age: 28 Year
  Sex: Male

DRUGS (1)
  1. GILENYA [Suspect]
     Active Substance: FINGOLIMOD HYDROCHLORIDE
     Indication: MULTIPLE SCLEROSIS
     Dosage: UNK, QD
     Route: 048

REACTIONS (9)
  - Rash [Recovered/Resolved]
  - Diarrhoea [Unknown]
  - Muscle strain [Recovered/Resolved]
  - Rash [Recovered/Resolved]
  - Skin papilloma [Unknown]
  - Blood cholesterol increased [Unknown]
  - Lymphocyte count decreased [Unknown]
  - Vision blurred [Recovered/Resolved]
  - Alanine aminotransferase increased [Unknown]

NARRATIVE: CASE EVENT DATE: 20150401
